FAERS Safety Report 5887778-5 (Version None)
Quarter: 2008Q3

REPORT INFORMATION
  Report Type: 
  Country: None (occurrence: None)
  Receive Date: 20080916
  Receipt Date: 20080916
  Transmission Date: 20090109
  Serious: Yes (Hospitalization)
  Sender: FDA-Public Use
  Company Number: None

PATIENT
  Age: 90 Year
  Sex: Female
  Weight: 50 kg

DRUGS (10)
  1. MOBIC [Suspect]
     Indication: PAIN
     Dosage: 15 MG DAILY PO CHRONIC
     Route: 048
  2. ASPIRIN [Suspect]
     Indication: CARDIOVASCULAR DISORDER
     Dosage: 81 MG DAILY PO CHRONIC
     Route: 048
  3. OSCAL [Concomitant]
  4. SIMVASTATIN [Concomitant]
  5. TYLENOL (CAPLET) [Concomitant]
  6. FOSAMAX [Concomitant]
  7. MEGACE [Concomitant]
  8. ZOLOFT [Concomitant]
  9. NAMENDA [Concomitant]
  10. RISPERDAL [Concomitant]

REACTIONS (5)
  - ANAEMIA [None]
  - BLOOD CREATININE INCREASED [None]
  - BLOOD UREA INCREASED [None]
  - GASTRIC ULCER [None]
  - UPPER GASTROINTESTINAL HAEMORRHAGE [None]
